FAERS Safety Report 18546496 (Version 1)
Quarter: 2020Q4

REPORT INFORMATION
  Report Type: Spontaneous
  Country: US (occurrence: US)
  Receive Date: 20201125
  Receipt Date: 20201125
  Transmission Date: 20210114
  Serious: No
  Sender: FDA-Public Use
  Company Number: US-PFIZER INC-2020461260

PATIENT
  Age: 74 Year
  Sex: Male

DRUGS (2)
  1. INLYTA [Suspect]
     Active Substance: AXITINIB
     Dosage: UNK (ON THE OTHER DOSAGE)
  2. INLYTA [Suspect]
     Active Substance: AXITINIB
     Dosage: 1 MG

REACTIONS (1)
  - Blood pressure increased [Unknown]
